FAERS Safety Report 14388725 (Version 1)
Quarter: 2018Q1

REPORT INFORMATION
  Report Type: Spontaneous
  Country: US (occurrence: US)
  Receive Date: 20180115
  Receipt Date: 20180115
  Transmission Date: 20180509
  Serious: Yes (Death, Other)
  Sender: FDA-Public Use
  Company Number: US-SA-2017SA221976

PATIENT
  Age: 50 Year
  Sex: Female
  Weight: 68.03 kg

DRUGS (4)
  1. TAXOTERE [Suspect]
     Active Substance: DOCETAXEL
     Indication: BREAST CANCER
     Route: 051
     Dates: start: 20111117, end: 20111117
  2. TAXOTERE [Suspect]
     Active Substance: DOCETAXEL
     Indication: BONE CANCER
     Route: 051
     Dates: start: 20110629, end: 20110629
  3. TAXOTERE [Suspect]
     Active Substance: DOCETAXEL
     Indication: BREAST CANCER
     Route: 051
     Dates: start: 20110629, end: 20110629
  4. TAXOTERE [Suspect]
     Active Substance: DOCETAXEL
     Indication: BONE CANCER
     Route: 051
     Dates: start: 20111117, end: 20111117

REACTIONS (2)
  - Alopecia [Unknown]
  - Psychological trauma [Unknown]
